FAERS Safety Report 8961255 (Version 1)
Quarter: 2012Q4

REPORT INFORMATION
  Report Type: 
  Country: US (occurrence: US)
  Receive Date: 20121212
  Receipt Date: 20121212
  Transmission Date: 20130627
  Serious: Yes (Other)
  Sender: FDA-Public Use
  Company Number: US-ACTELION-A-CH2012-75988

PATIENT
  Age: 16 Week
  Sex: Female

DRUGS (3)
  1. TRACLEER [Suspect]
     Indication: PULMONARY HYPERTENSION
     Dosage: UNK
     Route: 048
  2. SILDENAFIL [Concomitant]
  3. FUROSEMIDE [Concomitant]

REACTIONS (2)
  - Ventricular extrasystoles [Recovered/Resolved]
  - Blood pressure decreased [Unknown]
